FAERS Safety Report 11331473 (Version 1)
Quarter: 2015Q3

REPORT INFORMATION
  Report Type: Spontaneous
  Country: US (occurrence: US)
  Receive Date: 20150803
  Receipt Date: 20150803
  Transmission Date: 20151125
  Serious: Yes (Other)
  Sender: FDA-Public Use
  Company Number: US-ACORDA-ACO_23201_2010

PATIENT
  Age: 61 Year
  Sex: Female
  Weight: 74 kg

DRUGS (12)
  1. VICODIN [Concomitant]
     Active Substance: ACETAMINOPHEN\HYDROCODONE BITARTRATE
     Dates: start: 2000
  2. ACYCLOVIR. [Concomitant]
     Active Substance: ACYCLOVIR
     Dates: start: 2000
  3. BACLOFEN. [Concomitant]
     Active Substance: BACLOFEN
     Dates: start: 2000
  4. NITROFURANTOIN. [Concomitant]
     Active Substance: NITROFURANTOIN
     Dates: start: 2000
  5. TRAMADOL. [Concomitant]
     Active Substance: TRAMADOL
     Dates: start: 2000
  6. ZYRTEC [Concomitant]
     Active Substance: CETIRIZINE HYDROCHLORIDE
     Dates: start: 2000
  7. MECLIZINE [Concomitant]
     Active Substance: MECLIZINE\MECLIZINE HYDROCHLORIDE
     Dates: start: 2000
  8. DIAZEPAM. [Concomitant]
     Active Substance: DIAZEPAM
     Dates: start: 2000
  9. DETROL LA [Concomitant]
     Active Substance: TOLTERODINE TARTRATE
     Dates: start: 2000
  10. AMPYRA [Suspect]
     Active Substance: DALFAMPRIDINE
     Indication: SPINAL CORD INJURY
     Dosage: 10 MG, Q 12 HRS
     Route: 048
  11. QUALAQUIN [Concomitant]
     Active Substance: QUININE SULFATE
     Dates: start: 2000
  12. AMPYRA [Suspect]
     Active Substance: DALFAMPRIDINE
     Indication: MULTIPLE SCLEROSIS
     Dosage: 10 MG, QD
     Route: 048
     Dates: start: 20100520, end: 20100520

REACTIONS (3)
  - Adverse drug reaction [Unknown]
  - Off label use [Recovered/Resolved]
  - Diplegia [Recovered/Resolved]

NARRATIVE: CASE EVENT DATE: 20100520
